FAERS Safety Report 14626126 (Version 3)
Quarter: 2018Q2

REPORT INFORMATION
  Report Type: Report from Study
  Country: KR (occurrence: KR)
  Receive Date: 20180312
  Receipt Date: 20180418
  Transmission Date: 20180711
  Serious: Yes (Other)
  Sender: FDA-Public Use
  Company Number: KR-ASTELLAS-2017US043881

PATIENT

DRUGS (17)
  1. CHLORPHENIRAMINE MALEATE. [Concomitant]
     Active Substance: CHLORPHENIRAMINE MALEATE
     Indication: PROPHYLAXIS
     Dosage: UNK UNK, UNKNOWN FREQ.
     Route: 065
     Dates: start: 20170828, end: 20170830
  2. FUROSEMIDE                         /00032602/ [Concomitant]
     Active Substance: FUROSEMIDE
     Indication: PROPHYLAXIS
     Dosage: UNK UNK, UNKNOWN FREQ.
     Route: 065
     Dates: start: 20170828, end: 20170830
  3. NADROPARIN CALCIUM [Concomitant]
     Active Substance: NADROPARIN CALCIUM
     Indication: PROPHYLAXIS
     Dosage: UNK UNK, UNKNOWN FREQ.
     Route: 065
     Dates: start: 20170821, end: 20170822
  4. HYDROCORTISONE                     /00028602/ [Concomitant]
     Active Substance: HYDROCORTISONE
     Indication: PROPHYLAXIS
     Dosage: UNK UNK, UNKNOWN FREQ.
     Route: 065
     Dates: start: 20170828, end: 20170830
  5. ETOPOSIDE                          /00511902/ [Concomitant]
     Active Substance: ETOPOSIDE
     Indication: PROPHYLAXIS
     Dosage: UNK UNK, UNKNOWN FREQ.
     Route: 065
     Dates: start: 20170828, end: 20170830
  6. CYCLOSPORIN A [Concomitant]
     Active Substance: CYCLOSPORINE
     Indication: PROPHYLAXIS
     Dosage: UNK UNK, UNKNOWN FREQ.
     Route: 065
     Dates: start: 20170830, end: 20170920
  7. PROSTAGLANDIN E1 [Concomitant]
     Active Substance: ALPROSTADIL
     Indication: PROPHYLAXIS
     Dosage: UNK, UNKNOWN FREQ.
     Route: 065
     Dates: start: 20170821, end: 20170922
  8. PALONOSETRON HYDROCHLORIDE. [Concomitant]
     Active Substance: PALONOSETRON HYDROCHLORIDE
     Indication: PROPHYLAXIS
     Dosage: UNK UNK, UNKNOWN FREQ.
     Route: 065
     Dates: start: 20170822, end: 20170830
  9. CIPROFLOXACIN                      /00697202/ [Concomitant]
     Active Substance: CIPROFLOXACIN HYDROCHLORIDE
     Indication: PROPHYLAXIS
     Dosage: UNK UNK, UNKNOWN FREQ.
     Route: 065
     Dates: start: 20170830, end: 20170920
  10. LACTULOSE AIWA [Concomitant]
     Indication: PROPHYLAXIS
     Dosage: UNK UNK, UNKNOWN FREQ.
     Route: 065
     Dates: start: 20170830, end: 20170830
  11. MICAFUNGIN [Suspect]
     Active Substance: MICAFUNGIN
     Indication: PRODUCT USED FOR UNKNOWN INDICATION
     Dosage: UNK, UNKNOWN FREQ.
     Route: 065
  12. SODIUM BICARBONATE. [Concomitant]
     Active Substance: SODIUM BICARBONATE
     Indication: PROPHYLAXIS
     Dosage: 8.4 %, UNKNOWN FREQ.
     Route: 065
     Dates: start: 20170821, end: 20170830
  13. ALLOPURINOL                        /00003302/ [Concomitant]
     Active Substance: ALLOPURINOL
     Indication: PROPHYLAXIS
     Dosage: UNK UNK, UNKNOWN FREQ.
     Route: 065
     Dates: start: 20170821, end: 20170830
  14. POTASSIUM CHLORIDE. [Concomitant]
     Active Substance: POTASSIUM CHLORIDE
     Indication: PRODUCT USED FOR UNKNOWN INDICATION
     Dosage: 40MEQ/20ML , UNKNOWN FREQ.
     Route: 065
  15. ISONIAZID DC [Concomitant]
     Indication: PROPHYLAXIS
     Dosage: UNK UNK, UNKNOWN FREQ.
     Route: 065
     Dates: start: 20170710
  16. PYRIDOXINE                         /00058902/ [Concomitant]
     Active Substance: PYRIDOXINE
     Indication: PROPHYLAXIS
     Dosage: UNK UNK, UNKNOWN FREQ.
     Route: 065
     Dates: start: 20170710
  17. SODIUM CHLORIDE. [Concomitant]
     Active Substance: SODIUM CHLORIDE
     Indication: PROPHYLAXIS
     Dosage: 40MEQ/20ML , UNKNOWN FREQ.
     Route: 065
     Dates: start: 20170821, end: 20170830

REACTIONS (10)
  - Hypomagnesaemia [Not Recovered/Not Resolved]
  - Febrile neutropenia [Not Recovered/Not Resolved]
  - Abdominal pain [Not Recovered/Not Resolved]
  - Rash [Not Recovered/Not Resolved]
  - Neutrophil count decreased [Not Recovered/Not Resolved]
  - Diarrhoea [Not Recovered/Not Resolved]
  - Hyperkalaemia [Recovered/Resolved]
  - Stomatitis [Not Recovered/Not Resolved]
  - Hyperphosphataemia [Not Recovered/Not Resolved]
  - Renal tubular disorder [Not Recovered/Not Resolved]

NARRATIVE: CASE EVENT DATE: 20170831
